FAERS Safety Report 12337837 (Version 1)
Quarter: 2016Q2

REPORT INFORMATION
  Report Type: Spontaneous
  Country: US (occurrence: None)
  Receive Date: 20160504
  Receipt Date: 20160504
  Transmission Date: 20160815
  Serious: Yes (Hospitalization)
  Sender: FDA-Public Use
  Company Number: None

PATIENT
  Age: 67 Year
  Sex: Male

DRUGS (1)
  1. CAPECITABINE 500MG TEVA [Suspect]
     Active Substance: CAPECITABINE
     Indication: COLON CANCER
     Dosage: 2000MG BID FOR 14 DAYS ONLY PO
     Route: 048
     Dates: start: 201601, end: 201602

REACTIONS (2)
  - Fluid retention [None]
  - Liver abscess [None]

NARRATIVE: CASE EVENT DATE: 20160209
